FAERS Safety Report 20998390 (Version 2)
Quarter: 2022Q2

REPORT INFORMATION
  Report Type: Spontaneous
  Country: IT (occurrence: IT)
  Receive Date: 20220623
  Receipt Date: 20220629
  Transmission Date: 20220721
  Serious: Yes (Other)
  Sender: FDA-Public Use
  Company Number: IT-JAZZ-2022-IT-021319

PATIENT
  Age: 11 Year
  Sex: Male

DRUGS (1)
  1. XYREM [Suspect]
     Active Substance: SODIUM OXYBATE
     Indication: Narcolepsy
     Dosage: 3 GRAM, QD
     Route: 048
     Dates: start: 20220322

REACTIONS (6)
  - Hallucination [Unknown]
  - Somnambulism [Unknown]
  - Aggression [Unknown]
  - Dizziness [Unknown]
  - Cataplexy [Unknown]
  - Off label use [Unknown]

NARRATIVE: CASE EVENT DATE: 20220401
